FAERS Safety Report 5262918-X (Version None)
Quarter: 2007Q1

REPORT INFORMATION
  Report Type: 
  Country: None (occurrence: None)
  Receive Date: 20070312
  Receipt Date: 20070305
  Transmission Date: 20070707
  Serious: Yes (Death, Other)
  Sender: FDA-Public Use
  Company Number: PHBS2007JP03326

PATIENT
  Age: 63 Year
  Sex: Male

DRUGS (2)
  1. CYCLOSPORINE [Suspect]
     Indication: STEM CELL TRANSPLANT
     Route: 065
  2. METHOTREXATE [Concomitant]
     Indication: STEM CELL TRANSPLANT
     Route: 065

REACTIONS (2)
  - BRONCHOPULMONARY ASPERGILLOSIS [None]
  - CHRONIC GRAFT VERSUS HOST DISEASE [None]
